FAERS Safety Report 4459807-7 (Version None)
Quarter: 2004Q3

REPORT INFORMATION
  Report Type: 
  Country: None (occurrence: None)
  Receive Date: 20040923
  Receipt Date: 20040913
  Transmission Date: 20050211
  Serious: Yes (Death, Hospitalization, Other)
  Sender: FDA-Public Use
  Company Number: US-JNJFOC-20040903484

PATIENT
  Age: 26 Year
  Sex: Female

DRUGS (3)
  1. ACETAMINOPHEN [Suspect]
     Indication: SUICIDE ATTEMPT
     Dosage: ORAL
     Route: 048
  2. TEMAZEPAM [Suspect]
     Indication: SUICIDE ATTEMPT
     Dosage: ORAL
     Route: 048
  3. ETHANOL (ETHANOL) [Suspect]
     Indication: SUICIDE ATTEMPT
     Dosage: ORAL
     Route: 048

REACTIONS (10)
  - ACIDOSIS [None]
  - ALCOHOLISM [None]
  - BLOOD PRESSURE DECREASED [None]
  - HAEMODIALYSIS [None]
  - HEART RATE DECREASED [None]
  - HEPATIC FAILURE [None]
  - LETHARGY [None]
  - RENAL FAILURE [None]
  - TOXICOLOGIC TEST ABNORMAL [None]
  - VOMITING [None]
